FAERS Safety Report 5002232-0 (Version None)
Quarter: 2006Q2

REPORT INFORMATION
  Report Type: 
  Country: None (occurrence: None)
  Receive Date: 20060511
  Receipt Date: 20060511
  Transmission Date: 20061013
  Serious: Yes (Hospitalization, Other)
  Sender: FDA-Public Use
  Company Number: None

PATIENT
  Age: 59 Year
  Sex: Female
  Weight: 47.5 kg

DRUGS (11)
  1. MANGANESE SUPEROXIDE DISMUTASE [Concomitant]
  2. PACLITAXEL [Suspect]
     Indication: NON-SMALL CELL LUNG CANCER
     Dosage: 65 MG IV Q WEEK
     Route: 042
     Dates: start: 20060131, end: 20060221
  3. CARBOPLATIN [Suspect]
     Indication: NON-SMALL CELL LUNG CANCER
     Dosage: 20 MG IV Q WEEK
     Route: 042
     Dates: start: 20060131, end: 20060221
  4. NYSTATIN [Concomitant]
  5. KYTRIL [Concomitant]
  6. ZOLOFT [Concomitant]
  7. ASPIRIN [Concomitant]
  8. MAGIC SWIZZLE [Concomitant]
  9. ZOMETA [Concomitant]
  10. ARANESP [Concomitant]
  11. K-DUR 10 [Concomitant]

REACTIONS (2)
  - DYSPNOEA [None]
  - TACHYCARDIA [None]
